FAERS Safety Report 4430682-X (Version None)
Quarter: 2004Q3

REPORT INFORMATION
  Report Type: 
  Country: None (occurrence: None)
  Receive Date: 20040819
  Receipt Date: 20040819
  Transmission Date: 20050211
  Serious: Yes (Death)
  Sender: FDA-Public Use
  Company Number: None

PATIENT
  Sex: Female
  Weight: 81.3 kg

DRUGS (5)
  1. CYTOXAN [Suspect]
     Indication: CHRONIC LYMPHOCYTIC LEUKAEMIA
     Dosage: 14.5 MG/KG IV
     Route: 042
     Dates: start: 20040515, end: 20040516
  2. CYTOXAN [Suspect]
     Indication: CHRONIC LYMPHOCYTIC LEUKAEMIA
     Dosage: 14.5 MG/KG IV
     Route: 042
     Dates: start: 20040524, end: 20040525
  3. TOTAL BODY IRRADIATION [Concomitant]
  4. FLUDURABINE [Concomitant]
  5. FK 506 [Concomitant]

REACTIONS (11)
  - CHOLECYSTITIS [None]
  - ENCEPHALITIS HERPES [None]
  - HAEMATOMA [None]
  - HEPATIC FUNCTION ABNORMAL [None]
  - INTESTINAL FUNCTIONAL DISORDER [None]
  - LEUKOCYTOSIS [None]
  - MENINGITIS BACTERIAL [None]
  - NEUROLOGICAL SYMPTOM [None]
  - PYREXIA [None]
  - SKIN LESION [None]
  - THERAPY RESPONDER [None]
